FAERS Safety Report 19051113 (Version 1)
Quarter: 2021Q1

REPORT INFORMATION
  Report Type: Spontaneous
  Country: US (occurrence: US)
  Receive Date: 20210324
  Receipt Date: 20210324
  Transmission Date: 20210420
  Serious: No
  Sender: FDA-Public Use
  Company Number: US-ALLERGAN-2043073US

PATIENT
  Sex: Female

DRUGS (1)
  1. MESALAZINE 1 GM SUP [Suspect]
     Active Substance: MESALAMINE
     Indication: PRODUCT USED FOR UNKNOWN INDICATION

REACTIONS (2)
  - Product complaint [Unknown]
  - Poor quality product administered [Unknown]
